FAERS Safety Report 9193614 (Version 8)
Quarter: 2014Q1

REPORT INFORMATION
  Report Type: Spontaneous
  Country: US (occurrence: US)
  Receive Date: 20130327
  Receipt Date: 20140328
  Transmission Date: 20141002
  Serious: Yes (Hospitalization, Other)
  Sender: FDA-Public Use
  Company Number: US-JNJFOC-20120903325

PATIENT
  Age: 15 Year
  Sex: Male
  Weight: 79.6 kg

DRUGS (4)
  1. TYLENOL [Suspect]
     Route: 065
  2. TYLENOL [Suspect]
     Indication: PYREXIA
     Route: 065
  3. TYLENOL PM [Suspect]
     Indication: SLEEP DISORDER THERAPY
     Route: 048
     Dates: start: 20101012, end: 20101013
  4. MUCINEX [Concomitant]
     Indication: PRODUCT USED FOR UNKNOWN INDICATION
     Route: 065

REACTIONS (7)
  - Toxicity to various agents [Recovered/Resolved]
  - Liver injury [Recovered/Resolved]
  - Hepatic failure [Recovered/Resolved]
  - Coagulopathy [Recovered/Resolved]
  - Overdose [Unknown]
  - Urine output decreased [Unknown]
  - Mental status changes [Recovered/Resolved]
